FAERS Safety Report 26045236 (Version 1)
Quarter: 2025Q4

REPORT INFORMATION
  Report Type: Spontaneous
  Country: US (occurrence: US)
  Receive Date: 20251114
  Receipt Date: 20251114
  Transmission Date: 20260118
  Serious: No
  Sender: COSETTE PHARMACEUTICALS INC
  Company Number: US-COSETTE-CP2025US001090

PATIENT
  Age: 57 Year
  Sex: Female

DRUGS (1)
  1. VYLEESI [Suspect]
     Active Substance: BREMELANOTIDE ACETATE
     Indication: Product used for unknown indication
     Route: 058
     Dates: start: 20250917, end: 20251031

REACTIONS (2)
  - Vomiting [Unknown]
  - Myalgia [Unknown]

NARRATIVE: CASE EVENT DATE: 20250101
